FAERS Safety Report 9833243 (Version 2)
Quarter: 2014Q1

REPORT INFORMATION
  Report Type: Spontaneous
  Country: IT (occurrence: IT)
  Receive Date: 20140121
  Receipt Date: 20140204
  Transmission Date: 20141002
  Serious: Yes (Hospitalization)
  Sender: FDA-Public Use
  Company Number: PHHY2014IT005009

PATIENT
  Sex: Female

DRUGS (2)
  1. LORAZEPAM [Suspect]
     Route: 048
     Dates: start: 20130101, end: 20130405
  2. LEXOTAN [Concomitant]
     Indication: EMOTIONAL DISORDER
     Dosage: 20 DRP, UNK
     Dates: start: 20130101, end: 20130405

REACTIONS (2)
  - Drug abuse [Recovering/Resolving]
  - Somnolence [Recovering/Resolving]
